FAERS Safety Report 8041882-4 (Version None)
Quarter: 2012Q1

REPORT INFORMATION
  Report Type: 
  Country: None (occurrence: None)
  Receive Date: 20120112
  Receipt Date: 20120112
  Transmission Date: 20120608
  Serious: Yes (Other)
  Sender: FDA-Public Use
  Company Number: None

PATIENT
  Sex: Female
  Weight: 86.636 kg

DRUGS (1)
  1. CIPROFLOXACIN [Suspect]
     Indication: DIVERTICULITIS
     Dosage: 400MG
     Route: 041
     Dates: start: 20120105, end: 20120106

REACTIONS (2)
  - INFUSION SITE PRURITUS [None]
  - INFUSION SITE RASH [None]
